FAERS Safety Report 8564794-6 (Version None)
Quarter: 2012Q3

REPORT INFORMATION
  Report Type: 
  Country: None (occurrence: None)
  Receive Date: 20120723
  Receipt Date: 20120712
  Transmission Date: 20120928
  Serious: Yes (Other)
  Sender: FDA-Public Use
  Company Number: AUR-APL-2011-01105

PATIENT
  Age: 41 Year
  Sex: Male
  Weight: 94.1 kg

DRUGS (9)
  1. PF-02341066 [Suspect]
     Indication: NON-SMALL CELL LUNG CANCER
     Dosage: 500 MG (250 MG, 2 IN 1 D) , ORAL
     Route: 048
     Dates: start: 20110204
  2. BENAZEPRIL HYDROCHLORIDE [Suspect]
     Indication: HYPERTENSION
     Dosage: 10 MG (10 MG, 1 IN 1 D)
     Dates: start: 20070122, end: 20110517
  3. OMEPRAZOLE [Concomitant]
  4. LEVOTHYROXINE SODIUM [Concomitant]
  5. FLUTICASONE PROPIONATE [Concomitant]
  6. ZYRTEC D (CETIRIZINE W/PSEUDOEPHEDRINE) [Concomitant]
  7. ROSUVASTATIN CALCIUM [Concomitant]
  8. BUDESONIDE [Concomitant]
  9. NIACIN [Concomitant]

REACTIONS (4)
  - VISUAL FIELD DEFECT [None]
  - METAMORPHOPSIA [None]
  - HYPOTENSION [None]
  - OPTIC NERVE DISORDER [None]
